FAERS Safety Report 9207929 (Version 1)
Quarter: 2013Q2

REPORT INFORMATION
  Report Type: Spontaneous
  Country: RO (occurrence: RO)
  Receive Date: 20130403
  Receipt Date: 20130403
  Transmission Date: 20140414
  Serious: Yes (Hospitalization, Other)
  Sender: FDA-Public Use
  Company Number: RO-WATSON-2013-05334

PATIENT
  Age: 45 Year
  Sex: Male

DRUGS (1)
  1. ALPRAZOLAM (UNKNOWN) [Suspect]
     Indication: DEPRESSION
     Dosage: 75 MG/ 3 DAYS - PROGRESSIVE INCREASED DOSES
     Route: 065
     Dates: start: 1997

REACTIONS (2)
  - Drug dependence [Unknown]
  - Intentional drug misuse [Unknown]
